FAERS Safety Report 9137067 (Version 1)
Quarter: 2013Q1

REPORT INFORMATION
  Report Type: Spontaneous
  Country: US (occurrence: US)
  Receive Date: 20130219
  Receipt Date: 20130219
  Transmission Date: 20140127
  Serious: No
  Sender: FDA-Public Use
  Company Number: US-BRISTOL-MYERS SQUIBB COMPANY-16793630

PATIENT
  Age: 75 Year
  Sex: Female

DRUGS (10)
  1. ORENCIA FOR INJ [Suspect]
     Indication: RHEUMATOID ARTHRITIS
     Dosage: 1 INJECTION
     Route: 058
     Dates: start: 20120701
  2. PLAQUENIL [Concomitant]
  3. LOVASTATIN [Concomitant]
  4. FOLIC ACID [Concomitant]
  5. VITAMIN C [Concomitant]
  6. NEXIUM [Concomitant]
  7. HYDROCHLOROTHIAZIDE [Concomitant]
  8. VITAMIN D [Concomitant]
  9. CALCIUM-D3 NYCOMED [Concomitant]
  10. ASPIRIN [Concomitant]

REACTIONS (1)
  - Urinary tract infection [Not Recovered/Not Resolved]
